FAERS Safety Report 6988327-0 (Version None)
Quarter: 2010Q3

REPORT INFORMATION
  Report Type: 
  Country: None (occurrence: None)
  Receive Date: 20100916
  Receipt Date: 20100907
  Transmission Date: 20110219
  Serious: Yes (Other)
  Sender: FDA-Public Use
  Company Number: US-JNJFOC-20100800752

PATIENT
  Sex: Female

DRUGS (10)
  1. NUCYNTA [Suspect]
     Indication: PROCEDURAL PAIN
     Dosage: ONCE EVERY 4 HOURS AS NEEDED
     Route: 048
  2. ANCEF [Concomitant]
     Indication: PROCEDURAL PAIN
  3. ARIXTRA [Concomitant]
     Indication: ANTICOAGULANT THERAPY
     Route: 058
  4. SYNTHROID [Concomitant]
  5. DEMADEX [Concomitant]
  6. POTASSIUM CHLORIDE [Concomitant]
  7. BENICAR [Concomitant]
  8. MULTI-VITAMINS [Concomitant]
  9. IMDUR [Concomitant]
  10. CORDARONE [Concomitant]

REACTIONS (2)
  - HALLUCINATION [None]
  - PSYCHOTIC DISORDER [None]
